FAERS Safety Report 8066826-0 (Version None)
Quarter: 2012Q1

REPORT INFORMATION
  Report Type: 
  Country: None (occurrence: None)
  Receive Date: 20120124
  Receipt Date: 20120104
  Transmission Date: 20120608
  Serious: Yes (Hospitalization)
  Sender: FDA-Public Use
  Company Number: FR-PFIZER INC-2011316952

PATIENT
  Sex: Male

DRUGS (5)
  1. ALDACTONE [Suspect]
     Dosage: UNKNOWN
     Route: 048
  2. GLUCOPHAGE [Suspect]
     Indication: TYPE 2 DIABETES MELLITUS
     Dosage: UNK
     Route: 048
     Dates: end: 20110924
  3. PROPRANOLOL [Concomitant]
  4. VALSARTAN [Suspect]
     Dosage: 160 MG, 1X/DAY
     Route: 048
  5. PREDNISOLONE [Concomitant]

REACTIONS (1)
  - LACTIC ACIDOSIS [None]
